FAERS Safety Report 7358601-7 (Version None)
Quarter: 2011Q1

REPORT INFORMATION
  Report Type: 
  Country: None (occurrence: None)
  Receive Date: 20110317
  Receipt Date: 20110303
  Transmission Date: 20110831
  Serious: Yes (Other)
  Sender: FDA-Public Use
  Company Number: PHHY2011BR18032

PATIENT

DRUGS (2)
  1. LEPONEX [Suspect]
  2. CLOZAPINE [Suspect]

REACTIONS (1)
  - HOMICIDE [None]
